FAERS Safety Report 7768184-5 (Version None)
Quarter: 2011Q3

REPORT INFORMATION
  Report Type: 
  Country: None (occurrence: None)
  Receive Date: 20110922
  Receipt Date: 20110922
  Transmission Date: 20111222
  Serious: Yes (Life-Threatening)
  Sender: FDA-Public Use
  Company Number: None

PATIENT
  Age: 33 Year
  Sex: Female
  Weight: 97.522 kg

DRUGS (1)
  1. ABILIFY [Suspect]

REACTIONS (3)
  - WEIGHT INCREASED [None]
  - FURUNCLE [None]
  - PAIN [None]
